FAERS Safety Report 9526165 (Version 4)
Quarter: 2015Q2

REPORT INFORMATION
  Report Type: Spontaneous
  Country: US (occurrence: US)
  Receive Date: 20130916
  Receipt Date: 20150525
  Transmission Date: 20150821
  Serious: Yes (Other)
  Sender: FDA-Public Use
  Company Number: US-JNJFOC-20130716724

PATIENT
  Age: 87 Year
  Sex: Female
  Weight: 79.83 kg

DRUGS (3)
  1. XARELTO [Suspect]
     Active Substance: RIVAROXABAN
     Indication: HEART RATE IRREGULAR
     Route: 048
     Dates: start: 20130723
  2. BABY ASPIRIN [Suspect]
     Active Substance: ASPIRIN
     Indication: HEART RATE IRREGULAR
     Dosage: LOW DOSE
     Route: 048
     Dates: start: 201306, end: 20130630
  3. XARELTO [Suspect]
     Active Substance: RIVAROXABAN
     Indication: HEART RATE IRREGULAR
     Route: 048
     Dates: start: 20130606, end: 20130630

REACTIONS (2)
  - Urinary tract infection bacterial [Recovered/Resolved]
  - Blood urine present [Recovered/Resolved]

NARRATIVE: CASE EVENT DATE: 20130630
